FAERS Safety Report 11618333 (Version 2)
Quarter: 2015Q4

REPORT INFORMATION
  Report Type: Spontaneous
  Country: SI (occurrence: SI)
  Receive Date: 20151012
  Receipt Date: 20151015
  Transmission Date: 20160304
  Serious: Yes (Life-Threatening, Hospitalization)
  Sender: FDA-Public Use
  Company Number: SI-AMGEN-SVNSP2015103649

PATIENT
  Age: 82 Year
  Sex: Female

DRUGS (6)
  1. PROLIA [Suspect]
     Active Substance: DENOSUMAB
     Indication: OSTEOPOROSIS
     Dosage: 60MG,ONE SOLE ADMINISTRATION
     Route: 058
  2. KEPPRA [Concomitant]
     Active Substance: LEVETIRACETAM
     Indication: EPILEPSY
     Dosage: 1000 MG, 2X1 TBL./DAY
     Route: 048
     Dates: start: 2012
  3. BYOL [Concomitant]
     Active Substance: BISOPROLOL
     Dosage: 5 MG, QD
     Route: 048
  4. PLIVIT D3 [Concomitant]
     Active Substance: CHOLECALCIFEROL
     Indication: OSTEOPOROSIS
     Dosage: 4000 IU, QWK (70 GTT/WEEK)
     Route: 048
     Dates: start: 2011
  5. TEGRETOL CR [Concomitant]
     Active Substance: CARBAMAZEPINE
     Indication: EPILEPSY
     Dosage: 400 MG, 2X1 TBL./DAY
     Dates: start: 2009
  6. KALCIJEV KARBONAT KRKA [Concomitant]
     Indication: OSTEOPOROSIS
     Dosage: 1 G, QD
     Route: 048
     Dates: start: 2011

REACTIONS (2)
  - Epilepsy [Recovered/Resolved]
  - Hypocalcaemia [Recovered/Resolved]

NARRATIVE: CASE EVENT DATE: 20150430
